FAERS Safety Report 12721712 (Version 1)
Quarter: 2016Q3

REPORT INFORMATION
  Report Type: Spontaneous
  Country: US (occurrence: US)
  Receive Date: 20160902
  Receipt Date: 20160902
  Transmission Date: 20161109
  Serious: Yes (Hospitalization)
  Sender: FDA-Public Use
  Company Number: None

PATIENT
  Age: 18 Year
  Sex: Male
  Weight: 39.3 kg

DRUGS (2)
  1. FERROUS SULFATE DROPS, 75MG/ML RUGBY [Suspect]
     Active Substance: FERROUS SULFATE
     Dosage: PER G TUBE
     Dates: start: 20160510, end: 20160512
  2. DOCUSATE, 60MG/15ML HITECH [Suspect]
     Active Substance: DOCUSATE SODIUM
     Route: 048
     Dates: start: 20160510, end: 20160512

REACTIONS (3)
  - Hypoxia [None]
  - Burkholderia cepacia complex infection [None]
  - Increased upper airway secretion [None]

NARRATIVE: CASE EVENT DATE: 20160811
